FAERS Safety Report 5527707-7 (Version None)
Quarter: 2007Q4

REPORT INFORMATION
  Report Type: 
  Country: None (occurrence: None)
  Receive Date: 20071121
  Receipt Date: 20071109
  Transmission Date: 20080405
  Serious: Yes (Hospitalization)
  Sender: FDA-Public Use
  Company Number: MEDI-0005974

PATIENT
  Age: 65 Year
  Sex: Female
  Weight: 72 kg

DRUGS (8)
  1. ETHYOL [Suspect]
     Indication: NEOPLASM MALIGNANT
     Dosage: 200 MG/M2, INTRAVENOUS (NOT OTHERWISE SPECIFIED) ; 200 MG/M2, INTRAVENOUS (NOT OTHERWISE SPECIFIED)
     Route: 042
     Dates: start: 20070701, end: 20070823
  2. ETHYOL [Suspect]
     Indication: NEOPLASM MALIGNANT
     Dosage: 200 MG/M2, INTRAVENOUS (NOT OTHERWISE SPECIFIED) ; 200 MG/M2, INTRAVENOUS (NOT OTHERWISE SPECIFIED)
     Route: 042
     Dates: start: 20070831
  3. CERVICAL RADIATION THERAPY [Suspect]
     Indication: NEOPLASM MALIGNANT
     Dates: start: 20070701, end: 20070823
  4. CERVICAL RADIATION THERAPY [Suspect]
     Indication: NEOPLASM MALIGNANT
     Dates: start: 20070831
  5. ERBITUX [Suspect]
     Indication: NEOPLASM MALIGNANT
     Dosage: 250 MG/M2, INTRAVENOUS (NOT OTHERWISE SPECIFIED) ; 250 MG/M2, INTRAVENOUS (NOT OTHERWISE SPECIFIED)
     Route: 042
     Dates: start: 20070701, end: 20070823
  6. ERBITUX [Suspect]
     Indication: NEOPLASM MALIGNANT
     Dosage: 250 MG/M2, INTRAVENOUS (NOT OTHERWISE SPECIFIED) ; 250 MG/M2, INTRAVENOUS (NOT OTHERWISE SPECIFIED)
     Route: 042
     Dates: start: 20070831
  7. CARBOPLATIN [Concomitant]
  8. INSULIN [Concomitant]

REACTIONS (10)
  - BACTERIA BLOOD IDENTIFIED [None]
  - DERMATITIS [None]
  - DRUG INTERACTION [None]
  - ERYTHEMA [None]
  - FACE OEDEMA [None]
  - HYPERTHERMIA [None]
  - RADIATION SKIN INJURY [None]
  - SKIN EXFOLIATION [None]
  - SKIN FISSURES [None]
  - STAPHYLOCOCCAL INFECTION [None]
